FAERS Safety Report 7577721-5 (Version None)
Quarter: 2011Q2

REPORT INFORMATION
  Report Type: 
  Country: None (occurrence: None)
  Receive Date: 20110628
  Receipt Date: 20110622
  Transmission Date: 20111010
  Serious: Yes (Other)
  Sender: FDA-Public Use
  Company Number: CA-PFIZER INC-2011139734

PATIENT
  Age: 47 Year
  Sex: Female

DRUGS (3)
  1. DIAMICRON [Concomitant]
     Indication: DIABETES MELLITUS
     Dosage: 1 PILL, 3X/DAY
     Dates: start: 20100101
  2. XALATAN [Suspect]
     Indication: GLAUCOMA
     Dosage: 1 GTT IN EACH EYE, 1X/DAY
     Route: 047
     Dates: start: 20090101
  3. METFORMIN [Concomitant]
     Indication: DIABETES MELLITUS
     Dosage: 1 PILL, 4X/DAY
     Dates: start: 19980101

REACTIONS (1)
  - CATARACT [None]
